FAERS Safety Report 6360727-1 (Version None)
Quarter: 2009Q3

REPORT INFORMATION
  Report Type: 
  Country: None (occurrence: None)
  Receive Date: 20090918
  Receipt Date: 20070507
  Transmission Date: 20100115
  Serious: Yes (Hospitalization, Other)
  Sender: FDA-Public Use
  Company Number: US-ASTRAZENECA-2006UW07903

PATIENT
  Age: 54 Year
  Sex: Female
  Weight: 80.4 kg

DRUGS (9)
  1. SEROQUEL [Suspect]
     Indication: DEPRESSION
     Dosage: 100 MG-300 MG DAILY
     Route: 048
     Dates: start: 20020925
  2. SEROQUEL [Suspect]
     Indication: ANXIETY
     Dosage: 100 MG-300 MG DAILY
     Route: 048
     Dates: start: 20020925
  3. TRAZODONE [Concomitant]
     Dosage: STRENGTH- 100 MG-150 MG
     Dates: start: 19990819
  4. PAXIL [Concomitant]
     Dates: start: 20020925
  5. ZYPREXA [Concomitant]
     Dosage: STRENGTH-10MG-20MG
     Dates: start: 19990819
  6. REMERON [Concomitant]
     Route: 048
     Dates: start: 19990805
  7. ATENOLOL [Concomitant]
     Route: 048
     Dates: start: 20061111
  8. VYTORIN [Concomitant]
     Dosage: 10 MG/40 MG DAILY
     Route: 048
     Dates: start: 20061111
  9. NEURONTIN [Concomitant]
     Route: 048
     Dates: start: 20061111

REACTIONS (7)
  - ANXIETY [None]
  - CEREBROVASCULAR ACCIDENT [None]
  - DEPRESSION [None]
  - DIABETES MELLITUS [None]
  - DIABETIC NEUROPATHY [None]
  - TRANSIENT ISCHAEMIC ATTACK [None]
  - TYPE 2 DIABETES MELLITUS [None]
